FAERS Safety Report 9692745 (Version 1)
Quarter: 2013Q4

REPORT INFORMATION
  Report Type: Spontaneous
  Country: US (occurrence: None)
  Receive Date: 20131115
  Receipt Date: 20131115
  Transmission Date: 20140711
  Serious: Yes (Life-Threatening)
  Sender: FDA-Public Use
  Company Number: None

PATIENT
  Age: 56 Year
  Sex: Female
  Weight: 67.13 kg

DRUGS (4)
  1. ENBREL 50MG [Suspect]
     Indication: RHEUMATOID ARTHRITIS
     Route: 058
  2. HUMIRA [Suspect]
     Route: 058
  3. RITUXAN [Suspect]
  4. ACTEMRA [Suspect]

REACTIONS (2)
  - Transitional cell carcinoma [None]
  - Bladder cancer [None]
